FAERS Safety Report 9781207 (Version 2)
Quarter: 2013Q4

REPORT INFORMATION
  Report Type: Report from Study
  Country: JP (occurrence: JP)
  Receive Date: 20131224
  Receipt Date: 20131224
  Transmission Date: 20140711
  Serious: Yes (Other)
  Sender: FDA-Public Use
  Company Number: PHHY2012JP034413

PATIENT
  Age: 39 Year
  Sex: Male
  Weight: 58 kg

DRUGS (7)
  1. FTY 720 [Suspect]
     Indication: MULTIPLE SCLEROSIS
     Dosage: 0.5 MG, QD
     Route: 048
     Dates: start: 20120228, end: 20120228
  2. FTY 720 [Suspect]
     Dosage: 0.5 MG, QD
     Route: 048
     Dates: start: 20120410, end: 20120420
  3. CALMDOWN//ALPRAZOLAM [Concomitant]
     Indication: DEPRESSION
     Dosage: 1.2 MG, UNK
     Route: 048
  4. JZOLOFT [Concomitant]
     Indication: DEPRESSION
     Dosage: 12.5 MG, UNK
     Route: 048
  5. LAMICTAL [Concomitant]
     Indication: DEPRESSION
     Dosage: 6.25 MG, UNK
     Route: 048
  6. DEPAKENE [Concomitant]
     Indication: DEPRESSION
     Dosage: 20 MG, UNK
     Route: 048
  7. ELIETEN [Concomitant]
     Indication: GASTRITIS
     Dosage: 10 MG, UNK
     Route: 048

REACTIONS (1)
  - Hepatic function abnormal [Recovered/Resolved]
